FAERS Safety Report 6525989-6 (Version None)
Quarter: 2010Q1

REPORT INFORMATION
  Report Type: 
  Country: None (occurrence: None)
  Receive Date: 20100104
  Receipt Date: 20091223
  Transmission Date: 20100710
  Serious: Yes (Other)
  Sender: FDA-Public Use
  Company Number: DE-MEDIMMUNE-MEDI-0010038

PATIENT

DRUGS (1)
  1. SYNAGIS [Suspect]
     Route: 030
     Dates: start: 20090101, end: 20090101

REACTIONS (2)
  - APNOEA [None]
  - BRADYCARDIA [None]
